FAERS Safety Report 11133428 (Version 2)
Quarter: 2015Q2

REPORT INFORMATION
  Report Type: Report from Study
  Country: DE (occurrence: DE)
  Receive Date: 20150522
  Receipt Date: 20150630
  Transmission Date: 20150821
  Serious: Yes (Hospitalization)
  Sender: FDA-Public Use
  Company Number: DE-ABBVIE-15P-062-1394846-00

PATIENT
  Sex: Female

DRUGS (17)
  1. NACOM [Concomitant]
     Active Substance: CARBIDOPA\LEVODOPA
     Indication: PRODUCT USED FOR UNKNOWN INDICATION
     Dosage: 100/25 MG
     Route: 048
  2. EUTHYROX [Concomitant]
     Active Substance: LEVOTHYROXINE SODIUM
     Indication: PRODUCT USED FOR UNKNOWN INDICATION
  3. VITAMIN B12 [Concomitant]
     Active Substance: CYANOCOBALAMIN
     Indication: PRODUCT USED FOR UNKNOWN INDICATION
     Route: 048
  4. ASPIRIN. [Concomitant]
     Active Substance: ASPIRIN
     Indication: PRODUCT USED FOR UNKNOWN INDICATION
  5. REMERGIL [Concomitant]
     Active Substance: MIRTAZAPINE
     Indication: PRODUCT USED FOR UNKNOWN INDICATION
     Dosage: FREQUENCY: 0.5 IN ONE DAY
  6. MADOPAR [Concomitant]
     Active Substance: BENSERAZIDE HYDROCHLORIDE\LEVODOPA
     Indication: PRODUCT USED FOR UNKNOWN INDICATION
     Dosage: 100/25 MG; FREQUENCY: 0.5-1-1-2
     Route: 048
  7. LEPONEX [Concomitant]
     Active Substance: CLOZAPINE
     Indication: SLEEP DISORDER
     Dosage: FREQUENCY: 0.5 IN 1 DAY
     Route: 048
  8. APOMORPHINE [Concomitant]
     Active Substance: APOMORPHINE
     Indication: PRODUCT USED FOR UNKNOWN INDICATION
     Dates: start: 201203
  9. ZOLOFT [Concomitant]
     Active Substance: SERTRALINE HYDROCHLORIDE
     Indication: PRODUCT USED FOR UNKNOWN INDICATION
     Dosage: FREQUENCY: 1.5 IN 1 DAY
  10. PANTOZOL [Concomitant]
     Active Substance: PANTOPRAZOLE SODIUM
     Indication: PRODUCT USED FOR UNKNOWN INDICATION
     Route: 048
  11. IBUPROFEN. [Concomitant]
     Active Substance: IBUPROFEN
     Indication: PRODUCT USED FOR UNKNOWN INDICATION
     Route: 048
  12. EXELON [Concomitant]
     Active Substance: RIVASTIGMINE TARTRATE
     Indication: PRODUCT USED FOR UNKNOWN INDICATION
     Route: 062
  13. MOTILIUM [Concomitant]
     Active Substance: DOMPERIDONE
     Indication: PRODUCT USED FOR UNKNOWN INDICATION
     Route: 048
  14. SPASMEX [Concomitant]
     Active Substance: TROSPIUM CHLORIDE
     Indication: PRODUCT USED FOR UNKNOWN INDICATION
     Route: 048
  15. CONCOR [Concomitant]
     Active Substance: BISOPROLOL FUMARATE
     Indication: PRODUCT USED FOR UNKNOWN INDICATION
     Route: 048
  16. DELIX [Concomitant]
     Active Substance: RAMIPRIL
     Indication: PRODUCT USED FOR UNKNOWN INDICATION
     Route: 048
  17. DUODOPA [Suspect]
     Active Substance: CARBIDOPA\LEVODOPA
     Indication: PARKINSON^S DISEASE
     Dosage: MD 7.0ML CRD 3.8 ML/H CRN: 3.3 ML/H
     Route: 050
     Dates: start: 20130624

REACTIONS (38)
  - Hypokinesia [Unknown]
  - Tremor [Unknown]
  - Fatigue [Unknown]
  - Salivary hypersecretion [Unknown]
  - General physical health deterioration [Not Recovered/Not Resolved]
  - Hallucination, visual [Unknown]
  - Dyskinesia [Unknown]
  - Hallucination [Unknown]
  - Urge incontinence [Unknown]
  - Panic attack [Unknown]
  - Vision blurred [Unknown]
  - Fall [Unknown]
  - Freezing phenomenon [Unknown]
  - Bradykinesia [Unknown]
  - Carpal tunnel syndrome [Unknown]
  - Enteritis [Unknown]
  - Orthostatic hypotension [Unknown]
  - Gastritis [Unknown]
  - Depression [Unknown]
  - Gait disturbance [Unknown]
  - Dysphagia [Unknown]
  - Camptocormia [Unknown]
  - Constipation [Unknown]
  - Syncope [Unknown]
  - Apathy [Unknown]
  - Drug ineffective [Unknown]
  - Mobility decreased [Recovering/Resolving]
  - Rapid eye movements sleep abnormal [Unknown]
  - Hypoaesthesia [Not Recovered/Not Resolved]
  - Weight decreased [Unknown]
  - Parkinson^s disease [Unknown]
  - Speech disorder [Unknown]
  - Orthostatic intolerance [Unknown]
  - Hyperaesthesia [Unknown]
  - Cognitive disorder [Unknown]
  - On and off phenomenon [Unknown]
  - Infection [Unknown]
  - Vertigo [Unknown]

NARRATIVE: CASE EVENT DATE: 2014
